FAERS Safety Report 8695105 (Version 2)
Quarter: 2013Q4

REPORT INFORMATION
  Report Type: Spontaneous
  Country: US (occurrence: US)
  Receive Date: 20120731
  Receipt Date: 20131101
  Transmission Date: 20140711
  Serious: No
  Sender: FDA-Public Use
  Company Number: US-009507513-2012SP034639

PATIENT
  Sex: Female
  Weight: 58.6 kg

DRUGS (2)
  1. NEXPLANON [Suspect]
     Indication: PRODUCT USED FOR UNKNOWN INDICATION
     Dates: start: 20120619, end: 20120619
  2. NEXPLANON [Suspect]
     Dates: start: 20120619

REACTIONS (1)
  - Medical device complication [Recovered/Resolved]
